FAERS Safety Report 14117756 (Version 1)
Quarter: 2017Q4

REPORT INFORMATION
  Report Type: Spontaneous
  Country: MT (occurrence: MT)
  Receive Date: 20171023
  Receipt Date: 20171023
  Transmission Date: 20180321
  Serious: Yes (Other)
  Sender: FDA-Public Use
  Company Number: MT-UNICHEM LABORATORIES LIMITED-UCM201710-000246

PATIENT
  Age: 91 Year
  Sex: Female

DRUGS (2)
  1. QUETIAPINE. [Suspect]
     Active Substance: QUETIAPINE
  2. QUETIAPINE. [Suspect]
     Active Substance: QUETIAPINE

REACTIONS (8)
  - Haemolysis [Unknown]
  - Accelerated hypertension [Recovered/Resolved]
  - Tachypnoea [Unknown]
  - Blood lactate dehydrogenase increased [Unknown]
  - Hyperbilirubinaemia [Unknown]
  - Haemoglobinuria [Recovered/Resolved]
  - Hypoxia [Unknown]
  - Neuroleptic malignant syndrome [Unknown]
